FAERS Safety Report 8064000-5 (Version None)
Quarter: 2012Q1

REPORT INFORMATION
  Report Type: 
  Country: None (occurrence: None)
  Receive Date: 20120123
  Receipt Date: 20120119
  Transmission Date: 20120608
  Serious: Yes (Death, Hospitalization, Other)
  Sender: FDA-Public Use
  Company Number: DE-ABBOTT-12P-062-0894768-00

PATIENT
  Sex: Female
  Weight: 50 kg

DRUGS (1)
  1. HUMIRA [Suspect]
     Indication: RHEUMATOID ARTHRITIS
     Dates: end: 20111201

REACTIONS (11)
  - RESPIRATORY FAILURE [None]
  - POOR PERIPHERAL CIRCULATION [None]
  - CEREBROVASCULAR ACCIDENT [None]
  - ARTERIAL STENOSIS LIMB [None]
  - AORTIC OCCLUSION [None]
  - TACHYARRHYTHMIA [None]
  - THROMBOSIS [None]
  - CAROTID ARTERY STENOSIS [None]
  - PNEUMONIA [None]
  - INFLAMMATORY MARKER INCREASED [None]
  - SUPERINFECTION [None]
